FAERS Safety Report 9191669 (Version 2)
Quarter: 2013Q2

REPORT INFORMATION
  Report Type: Spontaneous
  Country: LU (occurrence: LU)
  Receive Date: 20130326
  Receipt Date: 20130424
  Transmission Date: 20140414
  Serious: Yes (Hospitalization, Other)
  Sender: FDA-Public Use
  Company Number: LU-B.I. PHARMACEUTICALS,INC./RIDGEFIELD-2013-BL-00139BL

PATIENT
  Age: 77 Year
  Sex: Male
  Weight: 78 kg

DRUGS (6)
  1. PRADAXA [Suspect]
     Indication: ATRIAL FIBRILLATION
     Dosage: 220 MG
     Route: 048
     Dates: start: 20130210, end: 20130220
  2. CONCOR [Suspect]
     Indication: ATRIAL FIBRILLATION
     Dosage: 5 MG
     Route: 048
     Dates: start: 20130210, end: 20130220
  3. COVERSYL [Concomitant]
     Dosage: 5 MG
     Route: 048
  4. JANUMET [Concomitant]
     Dosage: 50/1000
     Route: 048
  5. DIAMICRON [Concomitant]
     Dosage: 60 NR
     Route: 048
  6. CRESTOR [Concomitant]
     Dosage: 20 NR
     Route: 048

REACTIONS (6)
  - Cardiac failure [Recovered/Resolved]
  - Bronchopneumopathy [Unknown]
  - Respiratory disorder [Unknown]
  - Eyelid oedema [Recovered/Resolved]
  - Oedema peripheral [Recovered/Resolved]
  - Dyspnoea [Recovered/Resolved]
